FAERS Safety Report 7984310-7 (Version None)
Quarter: 2011Q4

REPORT INFORMATION
  Report Type: 
  Country: None (occurrence: None)
  Receive Date: 20111214
  Receipt Date: 20111128
  Transmission Date: 20120403
  Serious: Yes (Other)
  Sender: FDA-Public Use
  Company Number: 1000026059

PATIENT
  Age: 15 Year
  Sex: Female

DRUGS (26)
  1. NEXIUM [Concomitant]
  2. METHOTREXAT (METHOTREXATE) [Concomitant]
  3. SYMBICORT [Concomitant]
  4. TAVEGYL (CLEMASTINE FUMARATE) [Concomitant]
  5. PREDNISOLONE [Concomitant]
  6. MELATONIN [Concomitant]
  7. PULMOZYME [Concomitant]
  8. ESCITALOPRAM OXALATE [Suspect]
     Indication: DEPRESSION
     Dosage: SEE IMAGE: ORAL
     Route: 048
     Dates: start: 20110701, end: 20110801
  9. ESCITALOPRAM OXALATE [Suspect]
     Indication: ANXIETY
     Dosage: SEE IMAGE: ORAL
     Route: 048
     Dates: start: 20110701, end: 20110801
  10. ESCITALOPRAM OXALATE [Suspect]
     Indication: DEPRESSION
     Dosage: SEE IMAGE: ORAL
     Route: 048
     Dates: start: 20110801, end: 20110101
  11. ESCITALOPRAM OXALATE [Suspect]
     Indication: ANXIETY
     Dosage: SEE IMAGE: ORAL
     Route: 048
     Dates: start: 20110801, end: 20110101
  12. ESCITALOPRAM OXALATE [Suspect]
     Indication: DEPRESSION
     Dosage: SEE IMAGE: ORAL
     Route: 048
     Dates: start: 20110101
  13. ESCITALOPRAM OXALATE [Suspect]
     Indication: ANXIETY
     Dosage: SEE IMAGE: ORAL
     Route: 048
     Dates: start: 20110101
  14. ESCITALOPRAM OXALATE [Suspect]
     Indication: DEPRESSION
     Dosage: SEE IMAGE: ORAL
     Route: 048
     Dates: start: 20090701, end: 20110701
  15. ESCITALOPRAM OXALATE [Suspect]
     Indication: ANXIETY
     Dosage: SEE IMAGE: ORAL
     Route: 048
     Dates: start: 20090701, end: 20110701
  16. SINGULAIR [Concomitant]
  17. PROPAVAN (PROPIOMAZINE MALEATE) [Concomitant]
  18. KALCIPOS (CALCIUM CARBONATE) [Concomitant]
  19. TRADOLAN (TRAMADOL HYDROCHLORIDE) [Concomitant]
  20. FOLACIN (FOLIC ACID) [Concomitant]
  21. PULMICORT [Concomitant]
  22. AERIUS (EBASTINE) [Concomitant]
  23. IMPORTAL (LACTITOL) [Concomitant]
  24. NIFEREX (FERROGLYCINE SULFATE COMPLEX) [Concomitant]
  25. THERALEN (ALIMEMAZINE TARTRATE) [Concomitant]
  26. DIAZEPAM [Concomitant]

REACTIONS (8)
  - RASH PAPULAR [None]
  - RASH PRURITIC [None]
  - OVERWEIGHT [None]
  - CUSHINGOID [None]
  - EPISTAXIS [None]
  - NASAL OBSTRUCTION [None]
  - ANAL HAEMORRHAGE [None]
  - SCAB [None]
